FAERS Safety Report 6544432-4 (Version None)
Quarter: 2010Q1

REPORT INFORMATION
  Report Type: 
  Country: None (occurrence: None)
  Receive Date: 20100120
  Receipt Date: 20100120
  Transmission Date: 20100710
  Serious: No
  Sender: FDA-Public Use
  Company Number: None

PATIENT
  Sex: Female

DRUGS (1)
  1. MOTRIN IB [Suspect]

REACTIONS (3)
  - ABDOMINAL DISCOMFORT [None]
  - DEFAECATION URGENCY [None]
  - HAEMATOCHEZIA [None]
